FAERS Safety Report 15566170 (Version 1)
Quarter: 2018Q4

REPORT INFORMATION
  Report Type: Spontaneous
  Country: IN (occurrence: IN)
  Receive Date: 20181030
  Receipt Date: 20181030
  Transmission Date: 20190205
  Serious: Yes (Other)
  Sender: FDA-Public Use
  Company Number: IN-PHARMACEUTICS INTERNATIONAL, INC. (PII)-2018PII000027

PATIENT

DRUGS (1)
  1. HYDROCORTISONE USP [Suspect]
     Active Substance: HYDROCORTISONE
     Indication: POSTPARTUM HYPOPITUITARISM
     Dosage: 10 MG, BID, (DAILY)
     Route: 048

REACTIONS (1)
  - Osteonecrosis [Unknown]
